FAERS Safety Report 5199788-4 (Version None)
Quarter: 2007Q1

REPORT INFORMATION
  Report Type: 
  Country: None (occurrence: None)
  Receive Date: 20070105
  Receipt Date: 20061013
  Transmission Date: 20070707
  Serious: No
  Sender: FDA-Public Use
  Company Number: US-GLAXOSMITHKLINE-A0623349A

PATIENT
  Age: 46 Year
  Sex: Male

DRUGS (3)
  1. TAGAMET HB 200 [Suspect]
  2. ROLAIDS [Concomitant]
  3. PEPTO BISMOL [Concomitant]

REACTIONS (2)
  - DRUG INEFFECTIVE [None]
  - INTENTIONAL DRUG MISUSE [None]
